FAERS Safety Report 9324302 (Version 1)
Quarter: 2013Q2

REPORT INFORMATION
  Report Type: Spontaneous
  Country: US (occurrence: US)
  Receive Date: 20130603
  Receipt Date: 20130603
  Transmission Date: 20140414
  Serious: Yes (Hospitalization)
  Sender: FDA-Public Use
  Company Number: US-B.I. PHARMACEUTICALS,INC./RIDGEFIELD-2013-BI-14978BP

PATIENT
  Age: 48 Year
  Sex: Female
  Weight: 78 kg

DRUGS (13)
  1. PRADAXA [Suspect]
     Indication: ATRIAL FIBRILLATION
     Dosage: 300 MG
     Route: 048
     Dates: start: 20130403, end: 20130503
  2. VENTOLIN [Concomitant]
     Indication: CHRONIC OBSTRUCTIVE PULMONARY DISEASE
     Route: 055
  3. COREG [Concomitant]
     Indication: CARDIAC DISORDER
     Dosage: 25 MG
     Route: 048
  4. RYTHMOL [Concomitant]
     Indication: CARDIAC DISORDER
     Dosage: 750 MG
     Route: 048
  5. TRAZADONE [Concomitant]
     Indication: SLEEP DISORDER
     Dosage: 300 MG
     Route: 048
  6. LISINOPRIL [Concomitant]
     Indication: HYPERTENSION
     Dosage: 10 MG
     Route: 048
  7. B12 [Concomitant]
     Route: 048
  8. AMIODARONE [Concomitant]
     Indication: CARDIAC DISORDER
     Dosage: 400 MG
     Route: 048
  9. B6 [Concomitant]
     Route: 048
  10. ZOLOFT [Concomitant]
     Indication: DEPRESSION
     Dosage: 200 MG
     Route: 048
  11. MULTIVITAMIN [Concomitant]
     Route: 048
  12. SYNTHROID [Concomitant]
     Indication: HYPOTHYROIDISM
     Dosage: 0.25 MCG
     Route: 048
  13. ASPIRIN [Concomitant]
     Indication: CARDIAC DISORDER
     Dosage: 81 MG
     Route: 048

REACTIONS (1)
  - Atrial fibrillation [Recovered/Resolved]
